FAERS Safety Report 19983757 (Version 14)
Quarter: 2025Q1

REPORT INFORMATION
  Report Type: Other
  Country: CA (occurrence: CA)
  Receive Date: 20211021
  Receipt Date: 20250207
  Transmission Date: 20250409
  Serious: Yes (Hospitalization, Other)
  Sender: PURDUE
  Company Number: CA-NAPPMUNDI-GBR-2021-0091605

PATIENT
  Age: 36 Year
  Sex: Female

DRUGS (67)
  1. MORPHINE SULFATE [Suspect]
     Active Substance: MORPHINE SULFATE
     Indication: Induction of anaesthesia
     Route: 065
  2. MORPHINE SULFATE [Suspect]
     Active Substance: MORPHINE SULFATE
     Indication: Epidural anaesthesia
  3. MORPHINE SULFATE [Suspect]
     Active Substance: MORPHINE SULFATE
     Indication: Product used for unknown indication
  4. MORPHINE SULFATE [Suspect]
     Active Substance: MORPHINE SULFATE
     Indication: Induction of anaesthesia
     Route: 037
  5. MORPHINE SULFATE [Suspect]
     Active Substance: MORPHINE SULFATE
     Indication: Epidural anaesthesia
     Route: 065
  6. MORPHINE SULFATE [Suspect]
     Active Substance: MORPHINE SULFATE
     Indication: Product used for unknown indication
  7. ASPIRIN [Suspect]
     Active Substance: ASPIRIN
     Indication: Product used for unknown indication
     Route: 065
  8. ASPIRIN [Suspect]
     Active Substance: ASPIRIN
     Indication: Prophylaxis
  9. ASPIRIN [Suspect]
     Active Substance: ASPIRIN
     Indication: Pre-eclampsia
  10. AZATHIOPRINE [Suspect]
     Active Substance: AZATHIOPRINE
     Indication: Antisynthetase syndrome
     Route: 065
  11. AZATHIOPRINE [Suspect]
     Active Substance: AZATHIOPRINE
     Indication: Product used for unknown indication
  12. BUPIVACAINE HYDROCHLORIDE [Suspect]
     Active Substance: BUPIVACAINE HYDROCHLORIDE
     Indication: Epidural anaesthesia
     Route: 065
  13. BUPIVACAINE HYDROCHLORIDE [Suspect]
     Active Substance: BUPIVACAINE HYDROCHLORIDE
     Indication: Anaesthesia
     Route: 037
  14. BUPIVACAINE HYDROCHLORIDE [Suspect]
     Active Substance: BUPIVACAINE HYDROCHLORIDE
     Route: 065
  15. CALCIUM CHLORIDE\POTASSIUM CHLORIDE\SODIUM LACTATE [Suspect]
     Active Substance: CALCIUM CHLORIDE\POTASSIUM CHLORIDE\SODIUM LACTATE
     Indication: Product used for unknown indication
  16. CARBETOCIN [Suspect]
     Active Substance: CARBETOCIN
     Indication: Product used for unknown indication
  17. CARBETOCIN [Suspect]
     Active Substance: CARBETOCIN
     Route: 065
  18. CARBETOCIN [Suspect]
     Active Substance: CARBETOCIN
     Route: 030
  19. CARBETOCIN [Suspect]
     Active Substance: CARBETOCIN
     Route: 042
  20. CARBETOCIN [Suspect]
     Active Substance: CARBETOCIN
  21. CARBETOCIN [Suspect]
     Active Substance: CARBETOCIN
  22. EPINEPHRINE [Suspect]
     Active Substance: EPINEPHRINE
     Indication: Product used for unknown indication
     Route: 008
  23. EPINEPHRINE [Suspect]
     Active Substance: EPINEPHRINE
     Route: 065
  24. ESCITALOPRAM [Suspect]
     Active Substance: ESCITALOPRAM OXALATE
     Indication: Product used for unknown indication
     Route: 008
  25. ESCITALOPRAM [Suspect]
     Active Substance: ESCITALOPRAM OXALATE
     Route: 065
  26. ESCITALOPRAM [Suspect]
     Active Substance: ESCITALOPRAM OXALATE
     Route: 065
  27. FENTANYL [Suspect]
     Active Substance: FENTANYL
     Indication: Epidural anaesthesia
     Route: 038
  28. FENTANYL [Suspect]
     Active Substance: FENTANYL
     Indication: Anaesthesia
     Route: 038
  29. FENTANYL [Suspect]
     Active Substance: FENTANYL
     Indication: Induction of anaesthesia
  30. FENTANYL [Suspect]
     Active Substance: FENTANYL
     Indication: Epidural anaesthesia
     Route: 037
  31. FENTANYL [Suspect]
     Active Substance: FENTANYL
     Indication: Anaesthesia
     Route: 037
  32. FENTANYL [Suspect]
     Active Substance: FENTANYL
     Indication: Epidural anaesthesia
     Route: 038
  33. FENTANYL [Suspect]
     Active Substance: FENTANYL
     Indication: Anaesthesia
     Route: 038
  34. LANSOPRAZOLE [Suspect]
     Active Substance: LANSOPRAZOLE
     Indication: Product used for unknown indication
     Route: 065
  35. LANSOPRAZOLE [Suspect]
     Active Substance: LANSOPRAZOLE
  36. LIDOCAINE [Suspect]
     Active Substance: LIDOCAINE
     Indication: Product used for unknown indication
  37. LIDOCAINE [Suspect]
     Active Substance: LIDOCAINE
     Route: 061
  38. LIDOCAINE [Suspect]
     Active Substance: LIDOCAINE
  39. METHYLDOPA [Suspect]
     Active Substance: METHYLDOPA
     Indication: Product used for unknown indication
     Route: 065
  40. METHYLDOPA [Suspect]
     Active Substance: METHYLDOPA
  41. PHENYLEPHRINE [Suspect]
     Active Substance: PHENYLEPHRINE
     Indication: Product used for unknown indication
     Route: 042
  42. PHENYLEPHRINE [Suspect]
     Active Substance: PHENYLEPHRINE
     Route: 065
  43. PHENYLEPHRINE [Suspect]
     Active Substance: PHENYLEPHRINE
  44. PHENYLEPHRINE [Suspect]
     Active Substance: PHENYLEPHRINE
  45. ALBUTEROL [Suspect]
     Active Substance: ALBUTEROL
     Indication: Product used for unknown indication
     Route: 064
  46. ALBUTEROL [Suspect]
     Active Substance: ALBUTEROL
     Route: 065
  47. TACROLIMUS [Suspect]
     Active Substance: TACROLIMUS
     Indication: Product used for unknown indication
     Route: 065
  48. TACROLIMUS [Suspect]
     Active Substance: TACROLIMUS
  49. TINZAPARIN [Suspect]
     Active Substance: TINZAPARIN
     Indication: Product used for unknown indication
     Route: 065
  50. TINZAPARIN [Suspect]
     Active Substance: TINZAPARIN
  51. LACTATED RINGERS SOLUTION [Suspect]
     Active Substance: CALCIUM CHLORIDE\POTASSIUM CHLORIDE\SODIUM CHLORIDE\SODIUM LACTATE
     Indication: Product used for unknown indication
     Route: 065
  52. LACTATED RINGERS SOLUTION [Suspect]
     Active Substance: CALCIUM CHLORIDE\POTASSIUM CHLORIDE\SODIUM CHLORIDE\SODIUM LACTATE
     Route: 042
  53. LACTATED RINGERS SOLUTION [Suspect]
     Active Substance: CALCIUM CHLORIDE\POTASSIUM CHLORIDE\SODIUM CHLORIDE\SODIUM LACTATE
  54. BUPIVACAINE HYDROCHLORIDE [Suspect]
     Active Substance: BUPIVACAINE HYDROCHLORIDE
     Indication: Epidural anaesthesia
     Route: 065
  55. BUPIVACAINE HYDROCHLORIDE [Suspect]
     Active Substance: BUPIVACAINE HYDROCHLORIDE
     Indication: Anaesthesia
     Route: 037
  56. BUPIVACAINE HYDROCHLORIDE [Suspect]
     Active Substance: BUPIVACAINE HYDROCHLORIDE
     Indication: Induction of anaesthesia
     Route: 037
  57. CALCIUM CHLORIDE\POTASSIUM CHLORIDE\SODIUM CHLORIDE\SODIUM LACTATE [Suspect]
     Active Substance: CALCIUM CHLORIDE\POTASSIUM CHLORIDE\SODIUM CHLORIDE\SODIUM LACTATE
     Indication: Product used for unknown indication
  58. MORPHINE HYDROCHLORIDE [Suspect]
     Active Substance: MORPHINE HYDROCHLORIDE
     Indication: Product used for unknown indication
     Route: 065
  59. FENTANYL [Suspect]
     Active Substance: FENTANYL
     Indication: Epidural anaesthesia
     Route: 037
  60. FENTANYL [Suspect]
     Active Substance: FENTANYL
     Indication: Induction of anaesthesia
     Route: 037
  61. MORPHINE [Suspect]
     Active Substance: MORPHINE
     Indication: Product used for unknown indication
     Route: 065
  62. HYDROXYCHLOROQUINE [Suspect]
     Active Substance: HYDROXYCHLOROQUINE
     Indication: Antisynthetase syndrome
     Route: 065
  63. IMMUNE GLOBULIN NOS [Suspect]
     Active Substance: IMMUNE GLOBULIN NOS
     Indication: Antisynthetase syndrome
     Route: 042
  64. PREDNISONE [Suspect]
     Active Substance: PREDNISONE
     Indication: Antisynthetase syndrome
     Route: 065
  65. PREDNISONE [Suspect]
     Active Substance: PREDNISONE
     Route: 065
  66. LIDOCAINE;NOREPINEPHRINE [Concomitant]
     Indication: Product used for unknown indication
  67. INSULIN ASPART [Concomitant]
     Active Substance: INSULIN ASPART
     Indication: Gestational diabetes
     Route: 065

REACTIONS (10)
  - Dyspnoea [Unknown]
  - Normal newborn [Unknown]
  - Live birth [Unknown]
  - Premature delivery [Unknown]
  - Premature baby [Unknown]
  - Exposure during pregnancy [Unknown]
  - Anxiety [Unknown]
  - Maternal exposure during pregnancy [Unknown]
  - Maternal exposure timing unspecified [Unknown]
  - Off label use [Unknown]
